FAERS Safety Report 18945701 (Version 4)
Quarter: 2021Q3

REPORT INFORMATION
  Report Type: Other
  Country: IT (occurrence: IT)
  Receive Date: 20210226
  Receipt Date: 20210830
  Transmission Date: 20211014
  Serious: Yes (Death, Hospitalization)
  Sender: FDA-Public Use
  Company Number: IT-ROCHE-2775802

PATIENT
  Age: 73 Year
  Sex: Female

DRUGS (3)
  1. RITUXIMAB. [Suspect]
     Active Substance: RITUXIMAB
     Indication: GRANULOMATOSIS WITH POLYANGIITIS
     Route: 042
     Dates: start: 20201109
  2. PREDNISONE. [Concomitant]
     Active Substance: PREDNISONE
     Indication: GRANULOMATOSIS WITH POLYANGIITIS
     Route: 065
  3. RITUXIMAB. [Suspect]
     Active Substance: RITUXIMAB
     Route: 042
     Dates: start: 201710

REACTIONS (1)
  - COVID-19 pneumonia [Fatal]

NARRATIVE: CASE EVENT DATE: 20201224
